FAERS Safety Report 5902671-7 (Version None)
Quarter: 2008Q3

REPORT INFORMATION
  Report Type: 
  Country: None (occurrence: None)
  Receive Date: 20080929
  Receipt Date: 20080929
  Transmission Date: 20090109
  Serious: Yes (Hospitalization)
  Sender: FDA-Public Use
  Company Number: None

PATIENT
  Sex: Male

DRUGS (4)
  1. NEXIUM [Suspect]
     Indication: DYSPEPSIA
     Dosage: 40 MG 1 X D  ORAL
     Route: 048
     Dates: start: 20080903, end: 20080915
  2. PREDNISONE [Concomitant]
  3. VYTORIN [Concomitant]
  4. COREG [Concomitant]

REACTIONS (1)
  - STEVENS-JOHNSON SYNDROME [None]
